FAERS Safety Report 6402911-4 (Version None)
Quarter: 2009Q4

REPORT INFORMATION
  Report Type: 
  Country: None (occurrence: None)
  Receive Date: 20091014
  Receipt Date: 20091014
  Transmission Date: 20100525
  Serious: Yes (Other)
  Sender: FDA-Public Use
  Company Number: None

PATIENT
  Sex: Male
  Weight: 86.3 kg

DRUGS (1)
  1. CLONIDINE [Suspect]
     Indication: ATTENTION DEFICIT/HYPERACTIVITY DISORDER
     Dosage: 0.3 MG/24 HRS
     Route: 062
     Dates: start: 20090911

REACTIONS (2)
  - INCORRECT DOSE ADMINISTERED [None]
  - PRODUCT ADHESION ISSUE [None]
